FAERS Safety Report 9753843 (Version 2)
Quarter: 2015Q3

REPORT INFORMATION
  Report Type: Spontaneous
  Country: US (occurrence: US)
  Receive Date: 20131213
  Receipt Date: 20150805
  Transmission Date: 20151125
  Serious: No
  Sender: FDA-Public Use
  Company Number: US-GILEAD-2010-0027747

PATIENT
  Age: 78 Year
  Sex: Female

DRUGS (10)
  1. LETAIRIS [Suspect]
     Active Substance: AMBRISENTAN
     Indication: PULMONARY ARTERIAL HYPERTENSION
     Route: 048
     Dates: start: 20100110
  2. TIAZAC [Concomitant]
     Active Substance: DILTIAZEM HYDROCHLORIDE
  3. PLAVIX [Concomitant]
     Active Substance: CLOPIDOGREL BISULFATE
  4. SIMVASTATIN. [Concomitant]
     Active Substance: SIMVASTATIN
  5. LASIX [Concomitant]
     Active Substance: FUROSEMIDE
  6. NEXIUM [Concomitant]
     Active Substance: ESOMEPRAZOLE MAGNESIUM
  7. POTASSIUM CHLORIDE. [Concomitant]
     Active Substance: POTASSIUM CHLORIDE
  8. MINOCYCLINE [Concomitant]
     Active Substance: MINOCYCLINE\MINOCYCLINE HYDROCHLORIDE
  9. RECLAST [Concomitant]
     Active Substance: ZOLEDRONIC ACID
  10. LEVOTHYROXIN [Concomitant]
     Active Substance: LEVOTHYROXINE

REACTIONS (1)
  - Skin exfoliation [Recovering/Resolving]

NARRATIVE: CASE EVENT DATE: 20100306
